FAERS Safety Report 18090733 (Version 1)
Quarter: 2020Q3

REPORT INFORMATION
  Report Type: Spontaneous
  Country: US (occurrence: US)
  Receive Date: 20200728
  Receipt Date: 20200728
  Transmission Date: 20201103
  Serious: Yes (Other)
  Sender: FDA-Public Use
  Company Number: None

PATIENT
  Age: 55 Year
  Sex: Male
  Weight: 111.13 kg

DRUGS (1)
  1. GADOLINIUM CONTRAST [Suspect]
     Active Substance: GADOLINIUM

REACTIONS (2)
  - Drug level increased [None]
  - Contrast media deposition [None]

NARRATIVE: CASE EVENT DATE: 20041115
